FAERS Safety Report 24397241 (Version 1)
Quarter: 2024Q4

REPORT INFORMATION
  Report Type: Spontaneous
  Country: US (occurrence: None)
  Receive Date: 20241004
  Receipt Date: 20241004
  Transmission Date: 20250114
  Serious: Yes (Disabling)
  Sender: Public
  Company Number: None

PATIENT
  Age: 63 Year
  Sex: Female
  Weight: 99 kg

DRUGS (7)
  1. HADLIMA [Suspect]
     Active Substance: ADALIMUMAB-BWWD
     Indication: Ankylosing spondylitis
     Dosage: OTHER QUANTITY : 1 INJECTION(S);?OTHER FREQUENCY : TWO WEEKS;?
     Route: 058
     Dates: start: 20240712, end: 20240906
  2. VALSARTAN [Concomitant]
     Active Substance: VALSARTAN
  3. ZETIA [Concomitant]
     Active Substance: EZETIMIBE
  4. TYLENOL [Concomitant]
     Active Substance: ACETAMINOPHEN
  5. IBUPROFEN [Concomitant]
     Active Substance: IBUPROFEN
  6. CALCIUM [Concomitant]
     Active Substance: CALCIUM
  7. COENZYME Q10 [Concomitant]
     Active Substance: DIETARY SUPPLEMENT\UBIDECARENONE

REACTIONS (12)
  - Dizziness [None]
  - Pain in extremity [None]
  - Joint swelling [None]
  - Pain in extremity [None]
  - Tremor [None]
  - Chills [None]
  - Pyrexia [None]
  - Dysuria [None]
  - Bladder spasm [None]
  - Vision blurred [None]
  - Dysuria [None]
  - Dry eye [None]

NARRATIVE: CASE EVENT DATE: 20240802
